FAERS Safety Report 8775586 (Version 4)
Quarter: 2013Q1

REPORT INFORMATION
  Report Type: Report from Study
  Country: US (occurrence: US)
  Receive Date: 20120910
  Receipt Date: 20130128
  Transmission Date: 20140127
  Serious: Yes (Hospitalization)
  Sender: FDA-Public Use
  Company Number: US-BRISTOL-MYERS SQUIBB COMPANY-16941122

PATIENT
  Age: 29 Year
  Sex: Male
  Weight: 45.35 kg

DRUGS (6)
  1. ABILIFY TABS [Suspect]
     Indication: SCHIZOPHRENIA
     Dosage: 24-26AUG2012 20 MG;15MG/D,INCREASED TO 25MG/D:UNK-UNK REDUCED TO 20MG?01AUG-17AUG:15MG?18AUG:25MG
     Route: 048
     Dates: start: 20120801, end: 20120826
  2. LAMICTAL [Concomitant]
     Dates: start: 20120801
  3. COGENTIN [Concomitant]
     Dates: start: 20120818
  4. PROPRANOLOL [Concomitant]
     Dosage: 1 DF:20UNITS NOS
     Dates: start: 20120824
  5. BENZTROPINE [Concomitant]
     Indication: AGITATION
  6. BENZTROPINE [Concomitant]
     Indication: INSOMNIA

REACTIONS (1)
  - Schizophrenia [Recovered/Resolved]
